FAERS Safety Report 24896962 (Version 2)
Quarter: 2025Q1

REPORT INFORMATION
  Report Type: Report from Study
  Country: GB (occurrence: GB)
  Receive Date: 20250128
  Receipt Date: 20250318
  Transmission Date: 20250409
  Serious: Yes (Other)
  Sender: ABBVIE
  Company Number: GB-ABBVIE-6107550

PATIENT
  Age: 60 Year
  Sex: Female
  Weight: 81 kg

DRUGS (1)
  1. SKYRIZI [Suspect]
     Active Substance: RISANKIZUMAB-RZAA
     Indication: Psoriasis
     Route: 058
     Dates: start: 20240929

REACTIONS (4)
  - Deep vein thrombosis [Unknown]
  - Thrombosis [Unknown]
  - Influenza [Unknown]
  - Product preparation error [Unknown]

NARRATIVE: CASE EVENT DATE: 20241122
